FAERS Safety Report 7008794-6 (Version None)
Quarter: 2010Q3

REPORT INFORMATION
  Report Type: 
  Country: None (occurrence: None)
  Receive Date: 20100921
  Receipt Date: 20100909
  Transmission Date: 20110219
  Serious: Yes (Other)
  Sender: FDA-Public Use
  Company Number: TPH-00274

PATIENT
  Age: 39 Year
  Sex: Female

DRUGS (3)
  1. TRIQUIN TAB [Suspect]
     Indication: CONTRACEPTION
     Dosage: ORAL ; ORAL ; ORAL
     Route: 048
     Dates: end: 20090101
  2. TRIQUIN TAB [Suspect]
     Indication: CONTRACEPTION
     Dosage: ORAL ; ORAL ; ORAL
     Route: 048
     Dates: start: 20010101
  3. TRIQUIN TAB [Suspect]
     Indication: CONTRACEPTION
     Dosage: ORAL ; ORAL ; ORAL
     Route: 048
     Dates: start: 20100803

REACTIONS (6)
  - ABORTION [None]
  - DRUG EXPOSURE BEFORE PREGNANCY [None]
  - MULTIPLE PREGNANCY [None]
  - OPERATIVE HAEMORRHAGE [None]
  - PREGNANCY [None]
  - UTERINE DISORDER [None]
